FAERS Safety Report 5748281-6 (Version None)
Quarter: 2008Q2

REPORT INFORMATION
  Report Type: 
  Country: None (occurrence: None)
  Receive Date: 20080523
  Receipt Date: 20080511
  Transmission Date: 20081010
  Serious: Yes (Hospitalization, Other)
  Sender: FDA-Public Use
  Company Number: US-PFIZER INC-2008014680

PATIENT
  Sex: Female
  Weight: 72.6 kg

DRUGS (21)
  1. CHANTIX [Suspect]
     Indication: SMOKING CESSATION THERAPY
     Route: 048
     Dates: start: 20080101, end: 20080201
  2. LYRICA [Suspect]
     Indication: NEUROPATHY PERIPHERAL
     Route: 048
  3. SERAX [Suspect]
  4. HUMALOG [Suspect]
     Indication: DIABETES MELLITUS
  5. TOPAMAX [Concomitant]
     Indication: BIPOLAR DISORDER
  6. ABILIFY [Concomitant]
  7. PROZAC [Concomitant]
     Indication: BIPOLAR DISORDER
  8. ATENOLOL [Concomitant]
     Indication: MIGRAINE
  9. ATENOLOL [Concomitant]
     Indication: MYOCARDIAL INFARCTION
  10. DIOVAN [Concomitant]
  11. DARVON [Concomitant]
  12. HYDROCODONE BITARTRATE [Concomitant]
  13. LIDODERM [Concomitant]
  14. FLONASE [Concomitant]
  15. CYCLOSPORINE [Concomitant]
  16. ALLERX [Concomitant]
  17. METFORMIN HCL [Concomitant]
  18. LITHIUM CARBONATE [Concomitant]
  19. VITAMIN B-12 [Concomitant]
  20. OPHTHALMOLOGICALS [Concomitant]
  21. LASIX [Concomitant]

REACTIONS (32)
  - ANXIETY [None]
  - APHONIA [None]
  - BACK PAIN [None]
  - BILE DUCT CANCER [None]
  - BIPOLAR DISORDER [None]
  - BLOOD GLUCOSE INCREASED [None]
  - CONVULSION [None]
  - DIABETES MELLITUS [None]
  - DISORIENTATION [None]
  - GAIT DISTURBANCE [None]
  - HYPERTENSION [None]
  - HYPOAESTHESIA [None]
  - HYPOMANIA [None]
  - LOSS OF EMPLOYMENT [None]
  - MENTAL DISORDER [None]
  - MUSCULOSKELETAL PAIN [None]
  - MYOCARDIAL INFARCTION [None]
  - NEOPLASM MALIGNANT [None]
  - NEPHROLITHIASIS [None]
  - NEUROPATHY PERIPHERAL [None]
  - OEDEMA [None]
  - PALPITATIONS [None]
  - PANCREATITIS RELAPSING [None]
  - PAPILLOMA VIRAL INFECTION [None]
  - PARALYSIS [None]
  - POST-TRAUMATIC STRESS DISORDER [None]
  - RENAL SURGERY [None]
  - ROTATOR CUFF SYNDROME [None]
  - SENSATION OF HEAVINESS [None]
  - URINARY INCONTINENCE [None]
  - VAGINAL CANCER [None]
  - WEIGHT INCREASED [None]
